FAERS Safety Report 11695039 (Version 1)
Quarter: 2015Q4

REPORT INFORMATION
  Report Type: Report from Study
  Country: US (occurrence: US)
  Receive Date: 20151103
  Receipt Date: 20151103
  Transmission Date: 20160304
  Serious: Yes (Hospitalization)
  Sender: FDA-Public Use
  Company Number: US-JNJFOC-20151010689

PATIENT
  Age: 83 Year
  Sex: Male

DRUGS (14)
  1. AVODART [Concomitant]
     Active Substance: DUTASTERIDE
  2. LIPITOR [Concomitant]
     Active Substance: ATORVASTATIN CALCIUM
  3. FLOMAX [Concomitant]
     Active Substance: TAMSULOSIN HYDROCHLORIDE
  4. AMBIEN [Concomitant]
     Active Substance: ZOLPIDEM TARTRATE
  5. CEFDINIR. [Concomitant]
     Active Substance: CEFDINIR
  6. IMBRUVICA [Suspect]
     Active Substance: IBRUTINIB
     Indication: CHRONIC LYMPHOCYTIC LEUKAEMIA
     Route: 048
  7. OMEPRAZOLE. [Concomitant]
     Active Substance: OMEPRAZOLE
  8. RAMIPRIL. [Concomitant]
     Active Substance: RAMIPRIL
  9. FLORASTOR [Concomitant]
     Active Substance: SACCHAROMYCES CEREVISIAE
  10. DILTIAZEM [Concomitant]
     Active Substance: DILTIAZEM
  11. ALLOPURINOL. [Concomitant]
     Active Substance: ALLOPURINOL
  12. SOTALOL. [Concomitant]
     Active Substance: SOTALOL
  13. ZYRTEC [Concomitant]
     Active Substance: CETIRIZINE HYDROCHLORIDE
  14. IMBRUVICA [Suspect]
     Active Substance: IBRUTINIB
     Indication: CHRONIC LYMPHOCYTIC LEUKAEMIA
     Route: 048
     Dates: start: 20141105, end: 20150929

REACTIONS (12)
  - Septic shock [Recovered/Resolved]
  - Rhinovirus infection [Recovered/Resolved]
  - Dysphagia [Recovering/Resolving]
  - Swollen tongue [Unknown]
  - Multi-organ failure [Unknown]
  - Laceration [Recovering/Resolving]
  - Contusion [Recovering/Resolving]
  - Hyperglycaemia [Recovered/Resolved]
  - Wound [Recovering/Resolving]
  - Pneumonia viral [Recovered/Resolved]
  - Tongue haematoma [Unknown]
  - Acute kidney injury [Recovered/Resolved]

NARRATIVE: CASE EVENT DATE: 20150929
